FAERS Safety Report 6845245-6 (Version None)
Quarter: 2010Q3

REPORT INFORMATION
  Report Type: 
  Country: None (occurrence: None)
  Receive Date: 20100715
  Receipt Date: 20070815
  Transmission Date: 20110219
  Serious: No
  Sender: FDA-Public Use
  Company Number: US-PFIZER INC-2007069771

PATIENT
  Sex: Female
  Weight: 57.2 kg

DRUGS (7)
  1. CHANTIX [Suspect]
     Indication: SMOKING CESSATION THERAPY
     Dosage: EVERY DAY
     Dates: start: 20070810, end: 20070813
  2. CHANTIX [Suspect]
     Indication: ALCOHOL PROBLEM
  3. EFFEXOR [Concomitant]
  4. CAMPRAL [Concomitant]
  5. WELLBUTRIN [Concomitant]
  6. CLONAZEPAM [Concomitant]
  7. TRAZODONE HYDROCHLORIDE [Concomitant]
     Indication: SLEEP DISORDER

REACTIONS (3)
  - DECREASED APPETITE [None]
  - HEADACHE [None]
  - VOMITING [None]
